FAERS Safety Report 7551785-7 (Version None)
Quarter: 2011Q2

REPORT INFORMATION
  Report Type: 
  Country: None (occurrence: None)
  Receive Date: 20110609
  Receipt Date: 20110524
  Transmission Date: 20111010
  Serious: Yes (Other)
  Sender: FDA-Public Use
  Company Number: 2011MA006471

PATIENT
  Age: 82 Year
  Sex: Female

DRUGS (1)
  1. HALOPERIDOL LACTATE [Suspect]
     Indication: BIPOLAR DISORDER

REACTIONS (2)
  - TARDIVE DYSKINESIA [None]
  - PARKINSONISM [None]
